FAERS Safety Report 7096376-X (Version None)
Quarter: 2010Q4

REPORT INFORMATION
  Report Type: 
  Country: None (occurrence: None)
  Receive Date: 20101111
  Receipt Date: 20100826
  Transmission Date: 20110411
  Serious: Yes (Hospitalization)
  Sender: FDA-Public Use
  Company Number: US-BRISTOL-MYERS SQUIBB COMPANY-15258346

PATIENT
  Age: 40 Year
  Sex: Female

DRUGS (2)
  1. IXEMPRA KIT [Suspect]
     Indication: BREAST CANCER
     Dates: start: 20100712, end: 20100802
  2. XELODA [Suspect]
     Indication: BREAST CANCER
     Dates: start: 20100712, end: 20100802

REACTIONS (1)
  - MALIGNANT NEOPLASM PROGRESSION [None]
